FAERS Safety Report 8873086 (Version 2)
Quarter: 2012Q4

REPORT INFORMATION
  Report Type: 
  Country: US (occurrence: US)
  Receive Date: 20121029
  Receipt Date: 20121120
  Transmission Date: 20130627
  Serious: Yes (Hospitalization, Other)
  Sender: FDA-Public Use
  Company Number: US-AMGEN-USASP2012067880

PATIENT
  Age: 24 Year
  Sex: Female

DRUGS (1)
  1. ENBREL [Suspect]
     Indication: RHEUMATOID ARTHRITIS
     Dosage: 50 mg, qwk
     Dates: start: 20091001

REACTIONS (4)
  - Gestational diabetes [Recovered/Resolved]
  - Gestational hypertension [Recovered/Resolved]
  - Body temperature increased [Unknown]
  - Rheumatoid arthritis [Recovered/Resolved]
